FAERS Safety Report 8428178-3 (Version None)
Quarter: 2012Q2

REPORT INFORMATION
  Report Type: 
  Country: None (occurrence: None)
  Receive Date: 20120611
  Receipt Date: 20120605
  Transmission Date: 20120825
  Serious: No
  Sender: FDA-Public Use
  Company Number: US-PFIZER INC-2012132525

PATIENT
  Sex: Female
  Weight: 54 kg

DRUGS (3)
  1. AMLODIPINE [Concomitant]
     Indication: BLOOD PRESSURE
     Dosage: 2.5 MG, 1X/DAY
  2. LYRICA [Suspect]
     Indication: FIBROMYALGIA
     Dosage: 50 MG, 3X/DAY
     Dates: start: 20120524, end: 20120101
  3. LYRICA [Suspect]
     Dosage: 50 MG, 3X/DAY
     Dates: start: 20120605

REACTIONS (5)
  - MALAISE [None]
  - DEPRESSION [None]
  - SYNCOPE [None]
  - SOMNOLENCE [None]
  - DRY MOUTH [None]
